FAERS Safety Report 6305646-1 (Version None)
Quarter: 2009Q3

REPORT INFORMATION
  Report Type: 
  Country: None (occurrence: None)
  Receive Date: 20090807
  Receipt Date: 20090730
  Transmission Date: 20100115
  Serious: Yes (Hospitalization)
  Sender: FDA-Public Use
  Company Number: SPV1-2009-01583

PATIENT
  Age: 68 Year
  Sex: Male
  Weight: 90.7 kg

DRUGS (5)
  1. DAYTRANA [Suspect]
     Indication: ATTENTION DEFICIT/HYPERACTIVITY DISORDER
     Dosage: 30 MG, 1X/DAY;QD, TRANSDERMAL
     Route: 062
     Dates: start: 20080101
  2. WELLBUTRIN [Concomitant]
  3. NIASPAN [Concomitant]
  4. NEXIUM [Concomitant]
  5. VIAGRA [Concomitant]

REACTIONS (6)
  - ANXIETY [None]
  - ATRIAL FIBRILLATION [None]
  - DRUG ADMINISTERED AT INAPPROPRIATE SITE [None]
  - INSOMNIA [None]
  - OFF LABEL USE [None]
  - PRODUCT QUALITY ISSUE [None]
